FAERS Safety Report 23089122 (Version 1)
Quarter: 2023Q4

REPORT INFORMATION
  Report Type: Spontaneous
  Country: US (occurrence: US)
  Receive Date: 20231020
  Receipt Date: 20231020
  Transmission Date: 20240109
  Serious: Yes (Life-Threatening, Hospitalization)
  Sender: FDA-Public Use
  Company Number: US-MYLANLABS-2023M1109984

PATIENT
  Age: 31 Year
  Sex: Female

DRUGS (4)
  1. DEXAMETHASONE [Suspect]
     Active Substance: DEXAMETHASONE
     Indication: COVID-19 pneumonia
     Dosage: UNK
     Route: 065
  2. REMDESIVIR [Suspect]
     Active Substance: REMDESIVIR
     Indication: COVID-19 pneumonia
     Dosage: UNK
     Route: 065
  3. NITRIC OXIDE [Suspect]
     Active Substance: NITRIC OXIDE
     Indication: Hypoxia
     Dosage: UNK, RESPIRATORY (INHALATION)
     Route: 055
  4. NITRIC OXIDE [Suspect]
     Active Substance: NITRIC OXIDE
     Indication: Acidosis

REACTIONS (9)
  - Drug ineffective for unapproved indication [Unknown]
  - Pulmonary mucormycosis [Recovering/Resolving]
  - Off label use [Recovering/Resolving]
  - Maternal exposure during pregnancy [Recovered/Resolved]
  - Subcutaneous emphysema [Unknown]
  - Pneumomediastinum [Recovered/Resolved]
  - Mycetoma mycotic [Unknown]
  - Bronchopleural fistula [Unknown]
  - Pneumothorax [Recovered/Resolved]
